FAERS Safety Report 4852739-1 (Version None)
Quarter: 2005Q4

REPORT INFORMATION
  Report Type: 
  Country: None (occurrence: None)
  Receive Date: 20051125
  Receipt Date: 20050426
  Transmission Date: 20060501
  Serious: Yes (Other)
  Sender: FDA-Public Use
  Company Number: 2005050660

PATIENT
  Age: 69 Year
  Sex: Female
  Weight: 68.0396 kg

DRUGS (7)
  1. TIKOSYN [Suspect]
     Indication: ATRIAL FIBRILLATION
     Dosage: 500 MCG (250 MCG, 2 IN 1 D), ORAL
     Route: 048
     Dates: start: 20050112, end: 20050328
  2. CARDIZEM [Suspect]
     Indication: ATRIAL FIBRILLATION
     Dosage: 120 MG (120 MG, 1 IN 1 D), ORAL
     Route: 048
     Dates: start: 20050101
  3. ATORVASTATIN [Concomitant]
  4. WARFARIN SODIUM [Concomitant]
  5. MAGNESIUM [Concomitant]
  6. ESOMEPRAZOLE [Concomitant]
  7. LEVOTHYROXINE SODIUM [Concomitant]

REACTIONS (5)
  - ATRIAL FIBRILLATION [None]
  - BLOOD POTASSIUM DECREASED [None]
  - BLOOD THYROID STIMULATING HORMONE INCREASED [None]
  - HEART RATE IRREGULAR [None]
  - HYPERTHYROIDISM [None]
